FAERS Safety Report 9457946 (Version 1)
Quarter: 2013Q3

REPORT INFORMATION
  Report Type: Report from Study
  Country: BE (occurrence: BE)
  Receive Date: 20130814
  Receipt Date: 20130814
  Transmission Date: 20140515
  Serious: Yes (Hospitalization, Disabling)
  Sender: FDA-Public Use
  Company Number: BE-SANOFI-AVENTIS-2013SA039407

PATIENT
  Age: 65 Year
  Sex: Male

DRUGS (4)
  1. CABAZITAXEL [Suspect]
     Indication: NEOPLASM RECURRENCE
     Route: 042
     Dates: start: 20130325, end: 20130325
  2. PLAVIX [Concomitant]
     Indication: STENT PLACEMENT
     Route: 048
     Dates: start: 2003, end: 20130408
  3. CARDIOASPIRINE [Concomitant]
     Indication: STENT PLACEMENT
     Route: 048
     Dates: start: 2003
  4. KREDEX [Concomitant]
     Indication: HYPERTENSION
     Route: 048
     Dates: start: 2006

REACTIONS (3)
  - Diarrhoea [Recovered/Resolved]
  - Diarrhoea [Recovered/Resolved]
  - Colitis ulcerative [Recovered/Resolved]
